FAERS Safety Report 5765426-2 (Version None)
Quarter: 2008Q2

REPORT INFORMATION
  Report Type: 
  Country: None (occurrence: None)
  Receive Date: 20080611
  Receipt Date: 20080603
  Transmission Date: 20081010
  Serious: Yes (Other)
  Sender: FDA-Public Use
  Company Number: JP-ASTRAZENECA-2008AP04371

PATIENT
  Sex: Male

DRUGS (1)
  1. OMEPRAL TABLETS [Suspect]
     Route: 048

REACTIONS (2)
  - ECZEMA [None]
  - URTICARIA [None]
